FAERS Safety Report 12309977 (Version 1)
Quarter: 2016Q2

REPORT INFORMATION
  Report Type: Spontaneous
  Country: US (occurrence: None)
  Receive Date: 20160426
  Receipt Date: 20160426
  Transmission Date: 20160815
  Serious: Yes (Life-Threatening, Other)
  Sender: FDA-Public Use
  Company Number: None

PATIENT
  Age: 40 Year
  Sex: Male
  Weight: 105.69 kg

DRUGS (13)
  1. VENTOLIN HFA [Concomitant]
     Active Substance: ALBUTEROL SULFATE
  2. NDC 65862-051-30 SIMVASTATIN TAB, 10 MG AUROBINDO PHARMA LIMITED [Suspect]
     Active Substance: SIMVASTATIN
     Indication: LOW DENSITY LIPOPROTEIN INCREASED
     Dosage: 1 TABLET(S) ONCE A DAY TAKEN BY MOUTH
     Route: 048
     Dates: start: 20160422, end: 20160422
  3. BENADRYL (DIPHENHYDRAMINE HCL) [Concomitant]
  4. ZYRTEC ALLERGY (CETIRIZINE HCI) [Concomitant]
  5. NORVASC [Concomitant]
     Active Substance: AMLODIPINE BESYLATE
  6. EPIPEN [Concomitant]
     Active Substance: EPINEPHRINE
  7. PEPCID [Concomitant]
     Active Substance: FAMOTIDINE
  8. ACETAMINOPHEN\HYDROCODONE BITARTRATE [Concomitant]
     Active Substance: ACETAMINOPHEN\HYDROCODONE BITARTRATE
  9. PROMETHAZINE [Concomitant]
     Active Substance: PROMETHAZINE\PROMETHAZINE HYDROCHLORIDE
  10. LISINOPRIL (PRINIVIL) [Concomitant]
  11. MEDROL [Concomitant]
     Active Substance: METHYLPREDNISOLONE
  12. METFORMIN [Concomitant]
     Active Substance: METFORMIN HYDROCHLORIDE
  13. TRICOR [Concomitant]
     Active Substance: FENOFIBRATE

REACTIONS (2)
  - Cognitive disorder [None]
  - Rubber sensitivity [None]

NARRATIVE: CASE EVENT DATE: 20160422
